FAERS Safety Report 24786205 (Version 3)
Quarter: 2025Q3

REPORT INFORMATION
  Report Type: Report from Study
  Country: US (occurrence: US)
  Receive Date: 20241229
  Receipt Date: 20250730
  Transmission Date: 20251020
  Serious: Yes (Hospitalization, Other)
  Sender: UCB
  Company Number: US-UCBSA-2024067731

PATIENT
  Age: 15 Year
  Sex: Male
  Weight: 31 kg

DRUGS (1)
  1. FINTEPLA [Suspect]
     Active Substance: FENFLURAMINE
     Indication: Lennox-Gastaut syndrome
     Dosage: 3 MILLILITER, 2X/DAY (BID)
     Dates: start: 20240601

REACTIONS (2)
  - Aortic dilatation [Unknown]
  - Neuroprosthesis implantation [Not Recovered/Not Resolved]

NARRATIVE: CASE EVENT DATE: 20241127
